FAERS Safety Report 24089764 (Version 1)
Quarter: 2024Q3

REPORT INFORMATION
  Report Type: Spontaneous
  Country: CN (occurrence: CN)
  Receive Date: 20240715
  Receipt Date: 20240715
  Transmission Date: 20241016
  Serious: Yes (Hospitalization)
  Sender: Phathom Pharmaceuticals
  Company Number: CN-PHATHOM PHARMACEUTICALS INC.-2024PHT00547

PATIENT

DRUGS (2)
  1. VONOPRAZAN [Suspect]
     Active Substance: VONOPRAZAN
     Indication: Gastrointestinal endoscopic therapy
     Dosage: 20 MG, 1X/DAY
     Route: 048
  2. REBAMIPIDE [Suspect]
     Active Substance: REBAMIPIDE
     Indication: Gastrointestinal endoscopic therapy
     Dosage: 100 MG, 3X/DAY
     Route: 048

REACTIONS (2)
  - Constipation [Unknown]
  - Anal fissure [Unknown]
